FAERS Safety Report 16730824 (Version 1)
Quarter: 2019Q3

REPORT INFORMATION
  Report Type: Spontaneous
  Country: US (occurrence: US)
  Receive Date: 20190822
  Receipt Date: 20190822
  Transmission Date: 20191005
  Serious: No
  Sender: FDA-Public Use
  Company Number: US-SUNOVION-2019SUN003502

PATIENT
  Sex: Female
  Weight: 77.1 kg

DRUGS (1)
  1. LATUDA [Suspect]
     Active Substance: LURASIDONE HYDROCHLORIDE
     Indication: BIPOLAR DISORDER
     Dosage: 120 MG
     Route: 048

REACTIONS (5)
  - Dyskinesia [Unknown]
  - Fall [Unknown]
  - Salivary hypersecretion [Unknown]
  - Gait disturbance [Unknown]
  - Posture abnormal [Unknown]
